FAERS Safety Report 6089275-3 (Version None)
Quarter: 2009Q1

REPORT INFORMATION
  Report Type: 
  Country: None (occurrence: None)
  Receive Date: 20090224
  Receipt Date: 20090218
  Transmission Date: 20090719
  Serious: Yes (Disabling)
  Sender: FDA-Public Use
  Company Number: US-MERCK-0902USA03132

PATIENT
  Age: 49 Year
  Sex: Female

DRUGS (1)
  1. SINGULAIR [Suspect]
     Indication: HYPERSENSITIVITY
     Route: 048
     Dates: start: 20080101

REACTIONS (3)
  - DEAFNESS [None]
  - EAR HAEMORRHAGE [None]
  - NERVE INJURY [None]
